FAERS Safety Report 25925996 (Version 1)
Quarter: 2025Q4

REPORT INFORMATION
  Report Type: Spontaneous
  Country: US (occurrence: None)
  Receive Date: 20251014
  Receipt Date: 20251014
  Transmission Date: 20260118
  Serious: Yes (Death)
  Sender: FDA-CTU
  Company Number: None

PATIENT
  Age: 92 Year
  Sex: Female

DRUGS (11)
  1. SIMLANDI [Suspect]
     Active Substance: ADALIMUMAB-RYVK
     Indication: Sarcoidosis
     Dosage: INJECT 2 PENS ( 80 MG) UNDER THE SKIN (SUBCUTANEOUS INJECTION) EVERY TWO WEEKS?
     Route: 058
     Dates: start: 20250506, end: 20250524
  2. AMIODARONE [Concomitant]
     Active Substance: AMIODARONE
  3. ASPIRIN [Concomitant]
     Active Substance: ASPIRIN
  4. BUTALBITAL POW [Concomitant]
  5. CAFFEINE POW ANHYDROU [Concomitant]
  6. CODEINE POW PHOSPHAT [Concomitant]
  7. ENTRESTO TAB 49-51MG [Concomitant]
  8. FARXIGA [Concomitant]
     Active Substance: DAPAGLIFLOZIN PROPANEDIOL
  9. HYDROXYZINE POW HCL [Concomitant]
  10. MONTELUKAST SODIUM [Concomitant]
     Active Substance: MONTELUKAST SODIUM
  11. MYCOPHENOLATE MOFETIL [Concomitant]
     Active Substance: MYCOPHENOLATE MOFETIL

REACTIONS (1)
  - Death [None]

NARRATIVE: CASE EVENT DATE: 20250524
